FAERS Safety Report 5561204-8 (Version None)
Quarter: 2007Q4

REPORT INFORMATION
  Report Type: 
  Country: None (occurrence: None)
  Receive Date: 20071215
  Receipt Date: 20071026
  Transmission Date: 20080405
  Serious: No
  Sender: FDA-Public Use
  Company Number: US-AMGEN-KDL249920

PATIENT
  Sex: Female

DRUGS (2)
  1. ENBREL [Suspect]
     Indication: RHEUMATOID ARTHRITIS
     Route: 058
     Dates: start: 20070906
  2. METHOTREXATE [Concomitant]
     Route: 058
     Dates: start: 20070701

REACTIONS (10)
  - DISTURBANCE IN ATTENTION [None]
  - DYSPNOEA [None]
  - FATIGUE [None]
  - HYPOVENTILATION [None]
  - MENTAL IMPAIRMENT [None]
  - PARANASAL SINUS HYPERSECRETION [None]
  - PRODUCTIVE COUGH [None]
  - RESPIRATORY TRACT CONGESTION [None]
  - SOMNOLENCE [None]
  - WHEEZING [None]
